FAERS Safety Report 22289723 (Version 2)
Quarter: 2023Q2

REPORT INFORMATION
  Report Type: Spontaneous
  Country: GB (occurrence: None)
  Receive Date: 20230505
  Receipt Date: 20230509
  Transmission Date: 20230722
  Serious: Yes (Hospitalization, Other)
  Sender: FDA-Public Use
  Company Number: 2023A104064

PATIENT

DRUGS (1)
  1. ESOMEPRAZOLE MAGNESIUM [Suspect]
     Active Substance: ESOMEPRAZOLE MAGNESIUM
     Indication: Product used for unknown indication
     Dosage: 20 MG

REACTIONS (4)
  - Palpitations [Recovering/Resolving]
  - Cardiac failure [Unknown]
  - Hypertension [Unknown]
  - Muscular weakness [Recovered/Resolved with Sequelae]
